FAERS Safety Report 6156033-0 (Version None)
Quarter: 2009Q2

REPORT INFORMATION
  Report Type: 
  Country: None (occurrence: None)
  Receive Date: 20090415
  Receipt Date: 20090303
  Transmission Date: 20091009
  Serious: No
  Sender: FDA-Public Use
  Company Number: US-BAYER-200916464NA

PATIENT
  Sex: Male
  Weight: 54 kg

DRUGS (1)
  1. MAGNEVIST PRE-FILLED SINGLE USE [Suspect]
     Indication: MASS
     Dosage: TOTAL DAILY DOSE: 10 ML  UNIT DOSE: 10 ML
     Route: 042
     Dates: start: 20090303, end: 20090303

REACTIONS (1)
  - URTICARIA [None]
